FAERS Safety Report 6396384-8 (Version None)
Quarter: 2009Q4

REPORT INFORMATION
  Report Type: 
  Country: None (occurrence: None)
  Receive Date: 20091012
  Receipt Date: 20090928
  Transmission Date: 20100525
  Serious: Yes (Other)
  Sender: FDA-Public Use
  Company Number: US-JNJFOC-20091000197

PATIENT
  Age: 2 Year
  Sex: Male
  Weight: 13.61 kg

DRUGS (6)
  1. TYLENOL (CAPLET) [Suspect]
     Route: 048
  2. TYLENOL (CAPLET) [Suspect]
     Indication: PYREXIA
     Dosage: AS NEEDED
     Route: 048
  3. MULTI-VITAMINS [Concomitant]
     Indication: MEDICAL DIET
  4. CLARITIN [Concomitant]
     Indication: MULTIPLE ALLERGIES
  5. ALBUTEROL [Concomitant]
     Indication: ASTHMA
  6. PROVENTIL PLUS [Concomitant]
     Indication: ASTHMA

REACTIONS (2)
  - DIARRHOEA [None]
  - TRANSMISSION OF AN INFECTIOUS AGENT VIA A MEDICINAL PRODUCT [None]
